FAERS Safety Report 8935985 (Version 1)
Quarter: 2012Q4

REPORT INFORMATION
  Report Type: 
  Country: US (occurrence: US)
  Receive Date: 20121130
  Receipt Date: 20121130
  Transmission Date: 20130627
  Serious: No
  Sender: FDA-Public Use
  Company Number: US-ABBOTT-12P-163-0994751-00

PATIENT
  Age: 74 Year
  Sex: Male
  Weight: 90.8 kg

DRUGS (3)
  1. ANDROGEL [Suspect]
     Indication: BLOOD TESTOSTERONE DECREASED
     Dosage: 4 pumps daily
     Dates: start: 20121007
  2. ANDROGEL [Suspect]
     Dosage: 2 pumps daily
     Dates: start: 201206, end: 20121006
  3. TENORMIN [Concomitant]
     Indication: PRODUCT USED FOR UNKNOWN INDICATION

REACTIONS (2)
  - Oedema peripheral [Not Recovered/Not Resolved]
  - Dyspnoea [Not Recovered/Not Resolved]
